FAERS Safety Report 16857472 (Version 1)
Quarter: 2019Q3

REPORT INFORMATION
  Report Type: Spontaneous
  Country: IT (occurrence: IT)
  Receive Date: 20190926
  Receipt Date: 20190926
  Transmission Date: 20191005
  Serious: Yes (Hospitalization)
  Sender: FDA-Public Use
  Company Number: IT-PFIZER INC-2019411358

PATIENT
  Age: 81 Year
  Sex: Male
  Weight: 72 kg

DRUGS (2)
  1. ZITROMAX [Suspect]
     Active Substance: AZITHROMYCIN
     Indication: PNEUMONITIS
     Dosage: 500 MG, 1X/DAY
     Route: 048
     Dates: start: 20190901, end: 20190901
  2. SOTALOL. [Interacting]
     Active Substance: SOTALOL
     Dosage: 80 MG, 1X/DAY
     Route: 048

REACTIONS (3)
  - Drug interaction [Recovered/Resolved]
  - Torsade de pointes [Recovered/Resolved]
  - Loss of consciousness [Recovered/Resolved]

NARRATIVE: CASE EVENT DATE: 20190902
